FAERS Safety Report 6978165-7 (Version None)
Quarter: 2010Q3

REPORT INFORMATION
  Report Type: 
  Country: None (occurrence: None)
  Receive Date: 20100913
  Receipt Date: 20100827
  Transmission Date: 20110219
  Serious: Yes (Death)
  Sender: FDA-Public Use
  Company Number: US-BAYER-201031063NA

PATIENT
  Age: 19 Year
  Sex: Female
  Weight: 147 kg

DRUGS (8)
  1. YAZ [Suspect]
     Indication: MENSTRUATION IRREGULAR
     Route: 048
     Dates: start: 20070801, end: 20080601
  2. LISINOPRIL [Concomitant]
     Indication: HYPERTENSION
     Dates: start: 20070801
  3. GLUCOPHAGE [Concomitant]
     Indication: GLUCOSE TOLERANCE IMPAIRED
     Dosage: TOTAL DAILY DOSE: 1000 MG  UNIT DOSE: 500 MG
     Route: 048
  4. AUGMENTIN '125' [Concomitant]
     Dosage: TOTAL DAILY DOSE: 1758 MG  UNIT DOSE: 875 MG
     Dates: start: 20080515
  5. LEVAQUIN [Concomitant]
     Indication: PNEUMONIA
     Dosage: TOTAL DAILY DOSE: 750 MG  UNIT DOSE: 750 MG
     Dates: start: 20080604
  6. ROBITUSSIN AC [Concomitant]
     Indication: COUGH
     Route: 048
     Dates: start: 20080604
  7. ALBUTEROL [Concomitant]
     Dosage: EVERY 4-6 HRS
  8. PREDNISONE [Concomitant]
     Dosage: AS USED: 10 MG  UNIT DOSE: 10 MG

REACTIONS (3)
  - ACUTE RESPIRATORY FAILURE [None]
  - DEEP VEIN THROMBOSIS [None]
  - PULMONARY EMBOLISM [None]
